FAERS Safety Report 4685039-3 (Version None)
Quarter: 2005Q2

REPORT INFORMATION
  Report Type: 
  Country: None (occurrence: None)
  Receive Date: 20050531
  Receipt Date: 20050401
  Transmission Date: 20051028
  Serious: No
  Sender: FDA-Public Use
  Company Number: WAES 0504USA00295

PATIENT
  Age: 44 Year
  Sex: Male

DRUGS (6)
  1. ZETIA [Suspect]
     Indication: BLOOD CHOLESTEROL INCREASED
     Dosage: 10 MG/DAILY/PO
     Route: 048
  2. ZOCOR [Concomitant]
  3. [THERAPY UNSPECIFIED] [Concomitant]
  4. [THERAPY UNSPECIFIED] [Concomitant]
  5. ASPIRIN [Concomitant]
  6. METFORMIN [Concomitant]

REACTIONS (1)
  - GASTROINTESTINAL DISORDER [None]
